FAERS Safety Report 4660210-5 (Version None)
Quarter: 2005Q2

REPORT INFORMATION
  Report Type: 
  Country: None (occurrence: None)
  Receive Date: 20050512
  Receipt Date: 20050428
  Transmission Date: 20051028
  Serious: Yes (Hospitalization, Other)
  Sender: FDA-Public Use
  Company Number: FR-JNJFOC-20050105223

PATIENT
  Age: 50 Year
  Sex: Male

DRUGS (3)
  1. REMICADE [Suspect]
     Route: 042
  2. CYCLOPHOSPHAMIDE [Suspect]
     Dosage: TOTAL 7 DOSES
     Route: 049
  3. PREDNISONE [Concomitant]
     Dosage: 50MG-60MG DAILY

REACTIONS (14)
  - ACUTE RESPIRATORY FAILURE [None]
  - ASPERGILLOSIS [None]
  - ATELECTASIS [None]
  - DYSPNOEA [None]
  - HERPES SIMPLEX [None]
  - IMMUNOSUPPRESSION [None]
  - OPPORTUNISTIC INFECTION [None]
  - PNEUMOCYSTIS JIROVECI PNEUMONIA [None]
  - PSEUDOMONAS INFECTION [None]
  - RESPIRATORY SYNCYTIAL VIRUS INFECTION [None]
  - SEPSIS [None]
  - STAPHYLOCOCCAL SEPSIS [None]
  - THROMBOPHLEBITIS SEPTIC [None]
  - VASCULITIS [None]
